FAERS Safety Report 20576871 (Version 3)
Quarter: 2022Q2

REPORT INFORMATION
  Report Type: Spontaneous
  Country: US (occurrence: US)
  Receive Date: 20220310
  Receipt Date: 20220524
  Transmission Date: 20220720
  Serious: No
  Sender: FDA-Public Use
  Company Number: US-BRISTOL-MYERS SQUIBB COMPANY-BMS-2022-031492

PATIENT
  Age: 47 Year
  Sex: Female

DRUGS (3)
  1. KENALOG-40 [Suspect]
     Active Substance: TRIAMCINOLONE ACETONIDE
     Indication: Product used for unknown indication
     Route: 065
  2. TUKYSA [Interacting]
     Active Substance: TUCATINIB
     Indication: Breast cancer female
     Route: 065
  3. TUKYSA [Interacting]
     Active Substance: TUCATINIB
     Route: 065

REACTIONS (3)
  - Dermatitis allergic [Unknown]
  - Periarthritis [Unknown]
  - Drug interaction [Unknown]
